FAERS Safety Report 5844263-4 (Version None)
Quarter: 2008Q3

REPORT INFORMATION
  Report Type: 
  Country: None (occurrence: None)
  Receive Date: 20080813
  Receipt Date: 20080804
  Transmission Date: 20090109
  Serious: Yes (Life-Threatening, Other)
  Sender: FDA-Public Use
  Company Number: US-PFIZER INC-2008066061

PATIENT
  Age: 73 Year
  Sex: Female

DRUGS (11)
  1. FLUCONAZOLE [Suspect]
     Dosage: DAILY DOSE:100MG
  2. CITALOPRAM HYDROBROMIDE [Interacting]
     Indication: DEPRESSION
     Dosage: DAILY DOSE:40MG
  3. OLANZAPINE [Concomitant]
  4. CLONAZEPAM [Concomitant]
  5. LEVOFLOXACIN [Concomitant]
     Dosage: DAILY DOSE:500MG
  6. METOPROLOL SUCCINATE [Concomitant]
     Dosage: DAILY DOSE:100MG
  7. ACYCLOVIR [Concomitant]
  8. VANCOMYCIN HCL [Concomitant]
  9. AMLODIPINE [Concomitant]
     Dosage: DAILY DOSE:10MG
  10. VALSARTAN [Concomitant]
     Dosage: DAILY DOSE:160MG
  11. PANTOPRAZOLE [Concomitant]
     Dosage: DAILY DOSE:40MG

REACTIONS (2)
  - DRUG INTERACTION [None]
  - SEROTONIN SYNDROME [None]
